FAERS Safety Report 6969861-6 (Version None)
Quarter: 2010Q3

REPORT INFORMATION
  Report Type: 
  Country: None (occurrence: None)
  Receive Date: 20100902
  Receipt Date: 20100824
  Transmission Date: 20110219
  Serious: Yes (Death)
  Sender: FDA-Public Use
  Company Number: 2010080057

PATIENT
  Age: 46 Year
  Sex: Male

DRUGS (3)
  1. ONSOLIS [Suspect]
     Indication: CANCER PAIN
     Dosage: TITRATE UP TO 4 X 200MCG FILM (UP TO 4 TIMES DAILY),BU
     Route: 002
     Dates: start: 20100813
  2. DIAZEPAM [Concomitant]
  3. DURAGESIC-100 [Concomitant]

REACTIONS (1)
  - DEATH [None]
